FAERS Safety Report 8909453 (Version 1)
Quarter: 2012Q4

REPORT INFORMATION
  Report Type: 
  Country: DE (occurrence: DE)
  Receive Date: 20121114
  Receipt Date: 20121114
  Transmission Date: 20130627
  Serious: Yes (Hospitalization)
  Sender: FDA-Public Use
  Company Number: DE-MYLANLABS-2012S1022871

PATIENT
  Age: 31 Year
  Sex: Female

DRUGS (4)
  1. PRIMIDONE [Suspect]
     Indication: PARTIAL SEIZURES
     Dosage: 62.5mg
     Route: 065
  2. MESUXIMIDE [Interacting]
     Indication: PARTIAL SEIZURES
     Dosage: 1200mg
     Route: 065
  3. LAMOTRIGINE [Interacting]
     Indication: PARTIAL SEIZURES
     Dosage: 400mg
     Route: 065
  4. VALPROIC ACID [Concomitant]
     Indication: PARTIAL SEIZURES
     Dosage: 2400mg
     Route: 065

REACTIONS (10)
  - Drug level decreased [Recovered/Resolved]
  - Drug interaction [Recovered/Resolved]
  - Somnolence [None]
  - Ataxia [None]
  - Toxicity to various agents [None]
  - General physical health deterioration [None]
  - Nausea [None]
  - Fall [None]
  - Electroencephalogram abnormal [None]
  - Haemodialysis [None]
